FAERS Safety Report 14869978 (Version 2)
Quarter: 2018Q2

REPORT INFORMATION
  Report Type: Spontaneous
  Country: US (occurrence: US)
  Receive Date: 20180509
  Receipt Date: 20180517
  Transmission Date: 20180711
  Serious: No
  Sender: FDA-Public Use
  Company Number: US-MYLANLABS-2018M1024639

PATIENT
  Sex: Male

DRUGS (1)
  1. DEXTROAMPHETAMINE SULFATE EXTENDED-RELEASE CAPSULES [Suspect]
     Active Substance: DEXTROAMPHETAMINE SULFATE
     Indication: ATTENTION DEFICIT/HYPERACTIVITY DISORDER
     Dosage: UNK
     Route: 048

REACTIONS (4)
  - Disturbance in attention [Unknown]
  - Distractibility [Unknown]
  - Drug ineffective [Not Recovered/Not Resolved]
  - Thinking abnormal [Unknown]
